FAERS Safety Report 4937726-7 (Version None)
Quarter: 2006Q1

REPORT INFORMATION
  Report Type: 
  Country: None (occurrence: None)
  Receive Date: 20060309
  Receipt Date: 20060222
  Transmission Date: 20060701
  Serious: Yes (Hospitalization)
  Sender: FDA-Public Use
  Company Number: HQWYE989924FEB06

PATIENT
  Sex: Female

DRUGS (4)
  1. ENBREL [Suspect]
     Indication: RHEUMATOID ARTHRITIS
     Route: 058
     Dates: start: 20051001, end: 20060101
  2. ENBREL [Suspect]
     Route: 058
     Dates: start: 20060101
  3. UNSPECIFIED MEDICATION [Concomitant]
     Indication: RHEUMATOID ARTHRITIS
     Dosage: 2 DOSES OF AN UNSPECIFIED INJECTION IN SHOULDER
     Dates: start: 20060101
  4. METHOTREXATE [Concomitant]

REACTIONS (5)
  - DRUG INEFFECTIVE [None]
  - INTERVERTEBRAL DISC PROTRUSION [None]
  - JOINT SWELLING [None]
  - MOVEMENT DISORDER [None]
  - PAIN [None]
